FAERS Safety Report 9631032 (Version 1)
Quarter: 2013Q4

REPORT INFORMATION
  Report Type: Spontaneous
  Country: GB (occurrence: None)
  Receive Date: 20131011
  Receipt Date: 20131011
  Transmission Date: 20140711
  Serious: Yes (Life-Threatening)
  Sender: FDA-Public Use
  Company Number: FK201304490

PATIENT
  Age: 57 Year
  Sex: Female

DRUGS (5)
  1. CARBOPLATIN (MANUFACTURER UNKNOWN) (CARBOPLATIN) (CARBOPLATIN) [Suspect]
     Indication: LUNG CANCER METASTATIC
  2. COLCHICINE (COLCHICINE) (COLCHICINE) [Suspect]
     Indication: BEHCET^S SYNDROME
  3. AMITRIPTYLINE [Concomitant]
  4. DIAZEPAM [Concomitant]
  5. PROPRANOLOL [Concomitant]

REACTIONS (2)
  - Haemoptysis [None]
  - Platelet count decreased [None]
